FAERS Safety Report 8366887-5 (Version None)
Quarter: 2012Q2

REPORT INFORMATION
  Report Type: 
  Country: None (occurrence: None)
  Receive Date: 20120515
  Receipt Date: 20120515
  Transmission Date: 20120825
  Serious: Yes (Other)
  Sender: FDA-Public Use
  Company Number: None

PATIENT
  Sex: Female
  Weight: 95.5 kg

DRUGS (1)
  1. NIACIN [Suspect]
     Indication: BLOOD TRIGLYCERIDES INCREASED
     Dosage: 500 MG 1 TIME A DAY MOUTH - PILL
     Route: 048
     Dates: start: 20120101, end: 20120102

REACTIONS (2)
  - URTICARIA [None]
  - PRODUCT SUBSTITUTION ISSUE [None]
